FAERS Safety Report 12298937 (Version 3)
Quarter: 2020Q3

REPORT INFORMATION
  Report Type: Report from Study
  Country: IN (occurrence: IN)
  Receive Date: 20160425
  Receipt Date: 20200904
  Transmission Date: 20201102
  Serious: Yes (Hospitalization)
  Sender: FDA-Public Use
  Company Number: IN-ROCHE-1738279

PATIENT
  Age: 45 Year
  Sex: Male
  Weight: 77.8 kg

DRUGS (31)
  1. RITUXIMAB. [Suspect]
     Active Substance: RITUXIMAB
     Indication: GRANULOMATOSIS WITH POLYANGIITIS
     Dosage: DATE OF LAST DOSE PRIOR TO SAE: 02/APR/2016
     Route: 042
     Dates: start: 20160310, end: 20160310
  2. METHYLPREDNISOLONE. [Suspect]
     Active Substance: METHYLPREDNISOLONE
     Indication: GRANULOMATOSIS WITH POLYANGIITIS
     Route: 042
     Dates: start: 20160302
  3. METHYLPREDNISOLONE. [Suspect]
     Active Substance: METHYLPREDNISOLONE
     Route: 042
     Dates: start: 20160310
  4. METOPROLOL. [Concomitant]
     Active Substance: METOPROLOL
     Dates: start: 20160303
  5. EMESET [Concomitant]
     Active Substance: ONDANSETRON HYDROCHLORIDE
     Indication: NAUSEA
     Dosage: SOS
     Route: 048
     Dates: start: 20160303
  6. FOLVITE [Concomitant]
     Active Substance: FOLIC ACID
     Route: 048
     Dates: start: 20160419
  7. RITUXIMAB. [Suspect]
     Active Substance: RITUXIMAB
     Dosage: VISIT 4
     Route: 042
     Dates: start: 20160402, end: 20160402
  8. LASIX [Concomitant]
     Active Substance: FUROSEMIDE
     Dosage: 1?0?1/2
     Route: 048
     Dates: start: 20160317, end: 20160328
  9. RITUXIMAB. [Suspect]
     Active Substance: RITUXIMAB
     Dosage: VISIT 3
     Route: 042
     Dates: start: 20160325, end: 20160325
  10. NICARDIA [Concomitant]
     Active Substance: NIFEDIPINE
     Dosage: 1?0?1
     Dates: start: 20160328
  11. SHELCAL [Concomitant]
     Active Substance: CALCIUM CARBONATE\CHOLECALCIFEROL
     Dates: start: 20160303
  12. MINIPRESS [Concomitant]
     Active Substance: PRAZOSIN HYDROCHLORIDE
     Indication: HYPERTENSION
     Route: 048
     Dates: start: 20160303, end: 20160328
  13. FEBURIC [Concomitant]
     Active Substance: FEBUXOSTAT
     Route: 048
     Dates: start: 20160303, end: 20160317
  14. NICARDIA [Concomitant]
     Active Substance: NIFEDIPINE
     Indication: HYPERTENSION
     Route: 048
     Dates: start: 20160303, end: 20160328
  15. SEVCAR [Concomitant]
     Indication: HYPERPHOSPHATAEMIA
     Route: 048
     Dates: start: 20160303
  16. AUGMENTIN DUO [Concomitant]
     Active Substance: AMOXICILLIN\CLAVULANATE POTASSIUM
     Dates: start: 20160419, end: 20160423
  17. WYSOLONE [Concomitant]
     Active Substance: PREDNISOLONE
     Indication: VASCULITIS
     Route: 048
     Dates: start: 20160303, end: 20160317
  18. WYSOLONE [Concomitant]
     Active Substance: PREDNISOLONE
     Route: 048
     Dates: start: 20160328
  19. FEBURIC [Concomitant]
     Active Substance: FEBUXOSTAT
     Dosage: ALTERNATE DAYS
     Route: 048
     Dates: start: 20160317
  20. FEFOL Z [Concomitant]
     Route: 048
     Dates: start: 20160419
  21. RESTYL [Concomitant]
     Route: 048
     Dates: start: 20160419
  22. PAN?D [Concomitant]
     Active Substance: DOMPERIDONE\PANTOPRAZOLE SODIUM
     Indication: DYSPEPSIA
     Route: 048
     Dates: start: 20160303
  23. LASIX [Concomitant]
     Active Substance: FUROSEMIDE
     Dosage: 1/2?1/2
     Route: 048
     Dates: start: 20160303, end: 20160317
  24. AUGMENTIN DUO [Concomitant]
     Active Substance: AMOXICILLIN\CLAVULANATE POTASSIUM
     Dosage: 1?0?1
     Route: 048
     Dates: start: 20160328, end: 20160401
  25. RITUXIMAB. [Suspect]
     Active Substance: RITUXIMAB
     Dosage: VISIT 2
     Route: 042
     Dates: start: 20160317, end: 20160317
  26. WYSOLONE [Concomitant]
     Active Substance: PREDNISOLONE
     Route: 048
     Dates: start: 20160317, end: 20160328
  27. SHELCAL [Concomitant]
     Active Substance: CALCIUM CARBONATE\CHOLECALCIFEROL
     Indication: HYPOCALCAEMIA
     Route: 048
     Dates: start: 20160303, end: 20160328
  28. AZORAN (INDIA) [Concomitant]
     Route: 048
     Dates: start: 20160303, end: 20160317
  29. MINIPRESS [Concomitant]
     Active Substance: PRAZOSIN HYDROCHLORIDE
     Dates: start: 20160419
  30. ELTROXIN [Concomitant]
     Active Substance: LEVOTHYROXINE
     Route: 048
     Dates: start: 20160303
  31. FURSEMIDE [Concomitant]
     Active Substance: FUROSEMIDE
     Dates: start: 20160328

REACTIONS (4)
  - Pulmonary oedema [Recovered/Resolved]
  - Acute kidney injury [Recovering/Resolving]
  - Blood creatinine increased [Recovering/Resolving]
  - Granulomatosis with polyangiitis [Recovering/Resolving]

NARRATIVE: CASE EVENT DATE: 20160325
